FAERS Safety Report 14663879 (Version 1)
Quarter: 2018Q1

REPORT INFORMATION
  Report Type: Spontaneous
  Country: US (occurrence: US)
  Receive Date: 20180319
  Receipt Date: 20180319
  Transmission Date: 20180509
  Serious: No
  Sender: FDA-Public Use
  Company Number: None

PATIENT
  Age: 51 Year
  Sex: Male

DRUGS (2)
  1. NEXAVAR [Suspect]
     Active Substance: SORAFENIB
     Indication: NUCLEAR MAGNETIC RESONANCE IMAGING LIVER ABNORMAL
     Route: 048
     Dates: start: 20180223
  2. NEXAVAR [Suspect]
     Active Substance: SORAFENIB
     Indication: HEPATIC CIRRHOSIS
     Route: 048
     Dates: start: 20180223

REACTIONS (1)
  - Vision blurred [None]
